FAERS Safety Report 5077297-0 (Version None)
Quarter: 2006Q3

REPORT INFORMATION
  Report Type: 
  Country: None (occurrence: None)
  Receive Date: 20060810
  Receipt Date: 20060119
  Transmission Date: 20061208
  Serious: No
  Sender: FDA-Public Use
  Company Number: US-GLAXOSMITHKLINE-A0590083A

PATIENT
  Age: 55 Year
  Sex: Male

DRUGS (4)
  1. PAROXETINE HCL [Suspect]
     Indication: HEADACHE
     Dosage: 20MG PER DAY
     Route: 048
  2. PAXIL CR [Suspect]
     Indication: HEADACHE
     Dosage: 25MG PER DAY
     Route: 048
  3. AVAPRO [Concomitant]
  4. ATENOLOL [Concomitant]

REACTIONS (2)
  - HYPERVIGILANCE [None]
  - ILLUSION [None]
